FAERS Safety Report 5425207-6 (Version None)
Quarter: 2007Q3

REPORT INFORMATION
  Report Type: 
  Country: None (occurrence: None)
  Receive Date: 20070824
  Receipt Date: 20070815
  Transmission Date: 20080115
  Serious: Yes (Other)
  Sender: FDA-Public Use
  Company Number: GB-ROCHE-512037

PATIENT
  Age: 51 Year
  Sex: Male
  Weight: 133 kg

DRUGS (3)
  1. ORLISTAT [Suspect]
     Indication: OBESITY
     Route: 048
     Dates: start: 20070619
  2. STATIN NOS [Concomitant]
     Dosage: REPORTED TRADE  NAME: SILVERSTATIN
  3. UNSPECIFIED MEDICATIONS [Concomitant]

REACTIONS (1)
  - HALLUCINATION [None]
